FAERS Safety Report 4848361-3 (Version None)
Quarter: 2005Q4

REPORT INFORMATION
  Report Type: 
  Country: None (occurrence: None)
  Receive Date: 20051206
  Receipt Date: 20051128
  Transmission Date: 20060501
  Serious: Yes (Hospitalization)
  Sender: FDA-Public Use
  Company Number: URSO-2005-036

PATIENT
  Age: 79 Year
  Sex: Female

DRUGS (4)
  1. URSODIOL [Suspect]
     Indication: BILIARY CIRRHOSIS PRIMARY
     Dosage: 600 MG
     Route: 048
     Dates: start: 20000824
  2. PROHEPARUM (LIVER HYDROLYSATE COMBINED DRUG) [Concomitant]
  3. PRAVASTATIN [Concomitant]
  4. NORVASC [Concomitant]

REACTIONS (10)
  - ALANINE AMINOTRANSFERASE INCREASED [None]
  - ANOREXIA [None]
  - ASPARTATE AMINOTRANSFERASE INCREASED [None]
  - BLOOD URINE PRESENT [None]
  - CHOLELITHIASIS [None]
  - GAMMA-GLUTAMYLTRANSFERASE INCREASED [None]
  - LUNG ADENOCARCINOMA [None]
  - NON-SMALL CELL LUNG CANCER [None]
  - PLATELET COUNT INCREASED [None]
  - RADIATION INJURY [None]
